FAERS Safety Report 15173389 (Version 5)
Quarter: 2019Q3

REPORT INFORMATION
  Report Type: Spontaneous
  Country: IT (occurrence: US)
  Receive Date: 20180720
  Receipt Date: 20190808
  Transmission Date: 20191004
  Serious: Yes (Hospitalization, Other)
  Sender: FDA-Public Use
  Company Number: IT-MYLANLABS-2018M1053133

PATIENT
  Age: 58 Year
  Sex: Male
  Weight: 109 kg

DRUGS (7)
  1. INFLUENZA VACCINE INACT [Interacting]
     Active Substance: INFLUENZA VIRUS VACCINE
     Dosage: UNK
     Route: 065
  2. SIMVASTATIN. [Suspect]
     Active Substance: SIMVASTATIN
     Indication: PRODUCT USED FOR UNKNOWN INDICATION
     Dosage: REGIMEN 1
     Route: 065
  3. SPIRONOLACTONE. [Interacting]
     Active Substance: SPIRONOLACTONE
     Dosage: UNK
     Route: 065
  4. GLIBENCLAMIDE [Interacting]
     Active Substance: GLYBURIDE
     Indication: PRODUCT USED FOR UNKNOWN INDICATION
     Dosage: UNK
     Route: 065
  5. ACETYLSALICYLIC ACID [Interacting]
     Active Substance: ASPIRIN
     Indication: PRODUCT USED FOR UNKNOWN INDICATION
     Dosage: UNK
     Route: 065
  6. INFLUENZA VACCINE INACT [Interacting]
     Active Substance: INFLUENZA VIRUS VACCINE
     Indication: INFLUENZA IMMUNISATION
     Dosage: UNK
     Route: 065
  7. SPIRONOLACTONE. [Interacting]
     Active Substance: SPIRONOLACTONE
     Indication: PRODUCT USED FOR UNKNOWN INDICATION
     Dosage: UNK
     Route: 065

REACTIONS (19)
  - Scrotal oedema [Unknown]
  - Hepatic pain [Unknown]
  - Generalised oedema [Unknown]
  - Drug interaction [Unknown]
  - Back pain [Unknown]
  - Quadriparesis [Unknown]
  - Oedema peripheral [Unknown]
  - Areflexia [Unknown]
  - Rhabdomyolysis [Unknown]
  - Acute kidney injury [Unknown]
  - Localised oedema [Unknown]
  - Gait disturbance [Unknown]
  - Pulmonary congestion [Unknown]
  - Oliguria [Unknown]
  - Pain in extremity [Unknown]
  - Dehydration [Unknown]
  - Hepatomegaly [Unknown]
  - Dysuria [Unknown]
  - Myalgia [Unknown]
